FAERS Safety Report 4863624-3 (Version None)
Quarter: 2005Q4

REPORT INFORMATION
  Report Type: 
  Country: None (occurrence: None)
  Receive Date: 20051222
  Receipt Date: 20050527
  Transmission Date: 20060501
  Serious: No
  Sender: FDA-Public Use
  Company Number: US-GLAXOSMITHKLINE-A0560387A

PATIENT
  Age: 40 Year
  Sex: Female

DRUGS (1)
  1. FLONASE [Suspect]
     Dosage: 2MCG PER DAY
     Route: 045
     Dates: end: 20050524

REACTIONS (1)
  - INFLUENZA LIKE ILLNESS [None]
